FAERS Safety Report 25976566 (Version 1)
Quarter: 2025Q4

REPORT INFORMATION
  Report Type: Spontaneous
  Country: CA (occurrence: CA)
  Receive Date: 20251029
  Receipt Date: 20251029
  Transmission Date: 20260118
  Serious: Yes (Other)
  Sender: PROACTIV
  Company Number: CA-The Proactiv LLC-2187515

PATIENT

DRUGS (1)
  1. PROACTIV SOLUTION BLACKHEAD DISSOLVING [Suspect]
     Active Substance: SALICYLIC ACID

REACTIONS (1)
  - Neoplasm malignant [Unknown]
